FAERS Safety Report 17125713 (Version 2)
Quarter: 2020Q1

REPORT INFORMATION
  Report Type: Spontaneous
  Country: BG (occurrence: BG)
  Receive Date: 20191208
  Receipt Date: 20200131
  Transmission Date: 20200409
  Serious: Yes (Hospitalization)
  Sender: FDA-Public Use
  Company Number: PHHY2019BG227126

PATIENT
  Age: 80 Year
  Sex: Male

DRUGS (5)
  1. ACETYLSALICYLIC ACID [Suspect]
     Active Substance: ASPIRIN
     Dosage: DOSAGE SCHEME: 0-0-1
     Route: 065
     Dates: start: 2018
  2. ACETYLSALICYLIC ACID [Suspect]
     Active Substance: ASPIRIN
     Indication: PERIPHERAL ARTERY THROMBOSIS
     Dosage: 100 MG, QD
     Route: 065
  3. BISOPROLOL [Suspect]
     Active Substance: BISOPROLOL
     Dosage: DOSAGE SCHEME: 0-0-1
     Route: 065
     Dates: start: 2018
  4. BISOPROLOL [Suspect]
     Active Substance: BISOPROLOL
     Indication: HYPERTENSION
     Dosage: 5 MG, QD
     Route: 065
  5. CILOSTAZOL. [Suspect]
     Active Substance: CILOSTAZOL
     Indication: PERIPHERAL ARTERY THROMBOSIS
     Dosage: 100 MG, BID
     Route: 065

REACTIONS (4)
  - Purpura [Recovering/Resolving]
  - Eczema [Recovering/Resolving]
  - Dermatosis [Recovering/Resolving]
  - Chronic pigmented purpura [Recovering/Resolving]
